FAERS Safety Report 10240911 (Version 1)
Quarter: 2014Q2

REPORT INFORMATION
  Report Type: Spontaneous
  Country: US (occurrence: US)
  Receive Date: 20140617
  Receipt Date: 20140617
  Transmission Date: 20141212
  Serious: No
  Sender: FDA-Public Use
  Company Number: US-JNJFOC-20140601385

PATIENT
  Age: 43 Year
  Sex: Female
  Weight: 63.5 kg

DRUGS (34)
  1. DURAGESIC [Suspect]
     Indication: SPINAL FUSION SURGERY
     Dosage: DOSE:12.5UG/HR OR 25UG/HR
     Route: 062
     Dates: start: 201401, end: 201402
  2. DURAGESIC [Suspect]
     Indication: SPINAL FUSION SURGERY
     Route: 062
     Dates: start: 201402
  3. DURAGESIC [Suspect]
     Indication: BACK PAIN
     Route: 062
     Dates: start: 201402
  4. DURAGESIC [Suspect]
     Indication: BACK PAIN
     Dosage: DOSE:12.5UG/HR OR 25UG/HR
     Route: 062
     Dates: start: 201401, end: 201402
  5. PERCOCET [Suspect]
     Indication: BREAKTHROUGH PAIN
     Route: 065
     Dates: start: 201405
  6. XANAX [Suspect]
     Indication: ANXIETY
     Route: 048
  7. XANAX [Suspect]
     Indication: ANXIETY
     Route: 048
     Dates: start: 201402
  8. BUMEX [Concomitant]
     Indication: OEDEMA
     Route: 048
     Dates: start: 2012
  9. ALDACTONE [Concomitant]
     Indication: OEDEMA
     Route: 048
     Dates: start: 2012
  10. NORVASC [Concomitant]
     Indication: HEART RATE ABNORMAL
     Route: 048
     Dates: start: 2012
  11. NORVASC [Concomitant]
     Indication: BLOOD PRESSURE
     Route: 048
     Dates: start: 2012
  12. SOMA [Concomitant]
     Indication: MUSCLE RELAXANT THERAPY
     Route: 048
     Dates: start: 2007
  13. PRILOSEC [Concomitant]
     Indication: GASTROOESOPHAGEAL REFLUX DISEASE
     Route: 048
     Dates: start: 2010
  14. ZOFRAN [Concomitant]
     Indication: VOMITING
     Dosage: 4-6 HOURS AS NEEDED
     Route: 048
     Dates: start: 2010
  15. ZOFRAN [Concomitant]
     Indication: NAUSEA
     Dosage: 4-6 HOURS AS NEEDED
     Route: 048
     Dates: start: 2010
  16. SINGULAIR [Concomitant]
     Indication: ASTHMA
     Route: 048
     Dates: start: 2009
  17. SINGULAIR [Concomitant]
     Indication: CHRONIC OBSTRUCTIVE PULMONARY DISEASE
     Route: 048
     Dates: start: 2009
  18. LYRICA [Concomitant]
     Indication: NEUROPATHY PERIPHERAL
     Route: 048
     Dates: start: 201401, end: 201405
  19. LYRICA [Concomitant]
     Indication: NEUROPATHY PERIPHERAL
     Route: 048
     Dates: start: 201405
  20. REQUIP [Concomitant]
     Indication: NEUROPATHY PERIPHERAL
     Route: 048
     Dates: start: 201401, end: 201405
  21. REQUIP [Concomitant]
     Indication: NEUROPATHY PERIPHERAL
     Route: 048
     Dates: start: 201405
  22. CYMBALTA [Concomitant]
     Indication: DEPRESSION
     Route: 048
     Dates: start: 201401, end: 201402
  23. CYMBALTA [Concomitant]
     Indication: DEPRESSION
     Route: 048
     Dates: start: 201402
  24. CYMBALTA [Concomitant]
     Indication: NEURALGIA
     Route: 048
     Dates: start: 201402
  25. CYMBALTA [Concomitant]
     Indication: NEURALGIA
     Route: 048
     Dates: start: 201401, end: 201402
  26. SPIRIVA [Concomitant]
     Indication: CHRONIC OBSTRUCTIVE PULMONARY DISEASE
     Route: 055
     Dates: start: 2010
  27. ADVAIR DISKUS [Concomitant]
     Indication: ASTHMA
     Dosage: 500/50MCG
     Route: 055
     Dates: start: 2009
  28. ADVAIR DISKUS [Concomitant]
     Indication: CHRONIC OBSTRUCTIVE PULMONARY DISEASE
     Dosage: 500/50MCG
     Route: 055
     Dates: start: 2009
  29. COMBIVENT RESPIMAT [Concomitant]
     Indication: CHRONIC OBSTRUCTIVE PULMONARY DISEASE
     Dosage: 1PUFF
     Route: 055
     Dates: start: 2013
  30. PROAIR HFA [Concomitant]
     Dosage: 1-2 PUFFS,??EVERY 4 HOURS AS NEEDED
     Route: 055
     Dates: start: 2006
  31. ALBUTEROL [Concomitant]
     Indication: CHRONIC OBSTRUCTIVE PULMONARY DISEASE
     Dosage: 2.5MG/3ML,??EVERY 4 HOURS AS NEEDED
     Route: 055
     Dates: start: 1999
  32. ATROVENT [Concomitant]
     Indication: CHRONIC OBSTRUCTIVE PULMONARY DISEASE
     Dosage: EVERY 4 HOURS AS NEEDED
     Route: 055
     Dates: start: 2009
  33. VITAMIN [Concomitant]
     Route: 065
  34. MS-CONTIN [Concomitant]
     Route: 048
     Dates: end: 201402

REACTIONS (9)
  - Drug withdrawal syndrome [Unknown]
  - Abnormal loss of weight [Not Recovered/Not Resolved]
  - Product quality issue [Unknown]
  - Anxiety [Recovering/Resolving]
  - Drug dose omission [Recovered/Resolved]
  - Pain [Recovering/Resolving]
  - Medication error [Unknown]
  - Gastric disorder [Unknown]
  - Vomiting [Recovered/Resolved]
